FAERS Safety Report 9712940 (Version 1)
Quarter: 2013Q4

REPORT INFORMATION
  Report Type: Spontaneous
  Country: US (occurrence: US)
  Receive Date: 20131126
  Receipt Date: 20131126
  Transmission Date: 20140711
  Serious: No
  Sender: FDA-Public Use
  Company Number: US-BRISTOL-MYERS SQUIBB COMPANY-19370725

PATIENT
  Age: 49 Year
  Sex: Male
  Weight: 147.39 kg

DRUGS (9)
  1. BYDUREON [Suspect]
     Indication: TYPE 2 DIABETES MELLITUS
     Dates: start: 20130811
  2. LIPITOR [Concomitant]
     Route: 048
  3. ASPIRIN [Concomitant]
     Route: 048
  4. POTASSIUM [Concomitant]
     Route: 048
  5. FUROSEMIDE [Concomitant]
     Route: 048
  6. LOSARTAN [Concomitant]
     Route: 048
  7. METFORMIN [Concomitant]
     Route: 048
  8. GLYBURIDE [Concomitant]
     Route: 048
  9. BYSTOLIC [Concomitant]
     Route: 048

REACTIONS (2)
  - Injection site discolouration [Recovering/Resolving]
  - Injection site pruritus [Recovering/Resolving]
